FAERS Safety Report 7708277-1 (Version None)
Quarter: 2011Q3

REPORT INFORMATION
  Report Type: 
  Country: None (occurrence: None)
  Receive Date: 20110825
  Receipt Date: 20110817
  Transmission Date: 20111222
  Serious: No
  Sender: FDA-Public Use
  Company Number: US-BIOGENIDEC-2011BI031722

PATIENT
  Age: 48 Year
  Sex: Female

DRUGS (3)
  1. ASPIRIN [Concomitant]
     Indication: NECK PAIN
     Dates: start: 20110101
  2. OXYCODONE HCL [Concomitant]
     Indication: NECK PAIN
     Route: 048
     Dates: start: 20110101
  3. TYSABRI [Suspect]
     Indication: MULTIPLE SCLEROSIS
     Route: 042
     Dates: start: 20110701

REACTIONS (1)
  - MUSCLE SPASMS [None]
